FAERS Safety Report 4420882-7 (Version None)
Quarter: 2004Q3

REPORT INFORMATION
  Report Type: 
  Country: None (occurrence: None)
  Receive Date: 20040809
  Receipt Date: 20030627
  Transmission Date: 20050211
  Serious: Yes (Hospitalization)
  Sender: FDA-Public Use
  Company Number: JP-ROCHE-341124

PATIENT
  Age: 46 Year
  Sex: Male
  Weight: 59.6 kg

DRUGS (7)
  1. PEG-INTERFERON ALFA 2A (RO 25-8310) [Suspect]
     Route: 058
     Dates: start: 20021204
  2. RIBAVIRIN [Suspect]
     Route: 048
     Dates: start: 20021204
  3. ETIZOLAM [Suspect]
     Indication: DRUG USE FOR UNKNOWN INDICATION
     Route: 048
     Dates: start: 20030625, end: 20031105
  4. LANSOPRAZOLE [Concomitant]
     Indication: REFLUX OESOPHAGITIS
     Route: 048
     Dates: start: 20021219
  5. MOSAPRIDE CITRATE [Concomitant]
     Indication: REFLUX OESOPHAGITIS
     Dosage: DRUG WAS STARTED PRIOR TO THE STUDY.
     Route: 048
  6. TEPRENONE [Concomitant]
     Indication: REFLUX OESOPHAGITIS
     Dosage: DRUG STARTED PRIOR TO THE STUDY.
     Route: 048
  7. BROTIZOLAM [Concomitant]
     Indication: INSOMNIA
     Route: 048
     Dates: start: 20021217

REACTIONS (9)
  - ANXIETY [None]
  - DIZZINESS [None]
  - INSOMNIA [None]
  - NAUSEA [None]
  - OEDEMA [None]
  - SOMNOLENCE [None]
  - THERMAL BURN [None]
  - VERTIGO POSITIONAL [None]
  - VOCAL CORD DISORDER [None]
